FAERS Safety Report 4310461-4 (Version None)
Quarter: 2004Q1

REPORT INFORMATION
  Report Type: 
  Country: None (occurrence: None)
  Receive Date: 20040302
  Receipt Date: 20040216
  Transmission Date: 20041129
  Serious: Yes (Death)
  Sender: FDA-Public Use
  Company Number: 2004-DE-00810DE

PATIENT
  Age: 92 Year
  Sex: Female

DRUGS (1)
  1. AGGRENOX [Suspect]
     Indication: CEREBROVASCULAR ACCIDENT
     Dosage: STRENGTH: DIPYRIDAMOLE 200 MG
     Route: 048
     Dates: start: 20030501

REACTIONS (5)
  - CEREBROVASCULAR ACCIDENT [None]
  - DYSPHAGIA [None]
  - FEEDING DISORDER [None]
  - GASTROINTESTINAL DISORDER [None]
  - VOMITING [None]
